FAERS Safety Report 16187812 (Version 1)
Quarter: 2019Q2

REPORT INFORMATION
  Report Type: Spontaneous
  Country: US (occurrence: US)
  Receive Date: 20190412
  Receipt Date: 20190412
  Transmission Date: 20190711
  Serious: No
  Sender: FDA-Public Use
  Company Number: US-UNITED THERAPEUTICS-UNT-2019-006494

PATIENT
  Sex: Female
  Weight: 69.84 kg

DRUGS (1)
  1. ORENITRAM [Suspect]
     Active Substance: TREPROSTINIL
     Indication: PULMONARY ARTERIAL HYPERTENSION
     Dosage: 1 DF, TID
     Route: 048
     Dates: start: 20171020

REACTIONS (2)
  - Candida infection [Unknown]
  - Upper respiratory tract infection [Unknown]
